FAERS Safety Report 7352128-4 (Version None)
Quarter: 2011Q1

REPORT INFORMATION
  Report Type: 
  Country: None (occurrence: None)
  Receive Date: 20110309
  Receipt Date: 20110309
  Transmission Date: 20110831
  Serious: Yes (Hospitalization)
  Sender: FDA-Public Use
  Company Number: None

PATIENT
  Sex: Male
  Weight: 86.9 kg

DRUGS (2)
  1. TAXOTERE [Suspect]
     Dosage: 154 MG
  2. LEUPROLIDE ACETATE [Suspect]
     Dosage: 45 MG

REACTIONS (9)
  - MUSCULAR WEAKNESS [None]
  - CHILLS [None]
  - CONFUSIONAL STATE [None]
  - INTERVERTEBRAL DISCITIS [None]
  - BACK PAIN [None]
  - EXTRADURAL ABSCESS [None]
  - SPINAL COLUMN STENOSIS [None]
  - PYREXIA [None]
  - OSTEOMYELITIS [None]
